FAERS Safety Report 23195656 (Version 3)
Quarter: 2024Q3

REPORT INFORMATION
  Report Type: Report from Study
  Country: US (occurrence: US)
  Receive Date: 20231117
  Receipt Date: 20240909
  Transmission Date: 20241017
  Serious: No
  Sender: ALEXION PHARMACEUTICALS
  Company Number: US-ALXN-202311USA000932US

PATIENT
  Sex: Male

DRUGS (1)
  1. STRENSIQ [Suspect]
     Active Substance: ASFOTASE ALFA
     Indication: Product used for unknown indication
     Dosage: UNK
     Route: 065

REACTIONS (7)
  - Tooth disorder [Not Recovered/Not Resolved]
  - Kidney small [Unknown]
  - Blood phosphorus increased [Unknown]
  - Osteocalcin increased [Unknown]
  - Alanine aminotransferase decreased [Unknown]
  - Tooth fracture [Not Recovered/Not Resolved]
  - Injection site atrophy [Unknown]

NARRATIVE: CASE EVENT DATE: 20231030
